FAERS Safety Report 19308383 (Version 1)
Quarter: 2021Q2

REPORT INFORMATION
  Report Type: Spontaneous
  Country: US (occurrence: US)
  Receive Date: 20210525
  Receipt Date: 20210525
  Transmission Date: 20210717
  Serious: No
  Sender: FDA-Public Use
  Company Number: US-BEH-2021131957

PATIENT
  Age: 40 Year
  Sex: Female

DRUGS (2)
  1. HIZENTRA [Suspect]
     Active Substance: HUMAN IMMUNOGLOBULIN G
     Dosage: 8 GRAM, QW
     Route: 058
     Dates: start: 2016
  2. HIZENTRA [Suspect]
     Active Substance: HUMAN IMMUNOGLOBULIN G
     Dosage: UNK, TOT
     Route: 058
     Dates: start: 20210508, end: 20210508

REACTIONS (7)
  - Infusion site urticaria [Unknown]
  - Infusion site induration [Not Recovered/Not Resolved]
  - Infusion site erythema [Unknown]
  - Infusion site pruritus [Unknown]
  - Infusion site warmth [Not Recovered/Not Resolved]
  - Infusion site pain [Not Recovered/Not Resolved]
  - Urticaria [Unknown]

NARRATIVE: CASE EVENT DATE: 20210508
